FAERS Safety Report 9389905 (Version 1)
Quarter: 2013Q3

REPORT INFORMATION
  Report Type: Spontaneous
  Country: US (occurrence: US)
  Receive Date: 20130708
  Receipt Date: 20130708
  Transmission Date: 20140515
  Serious: No
  Sender: FDA-Public Use
  Company Number: US-AMGEN-USASP2013044429

PATIENT
  Age: 58 Year
  Sex: Female

DRUGS (3)
  1. ENBREL [Suspect]
     Indication: RHEUMATOID ARTHRITIS
     Dosage: 50 MG, QWK
     Route: 065
     Dates: start: 20081022
  2. ENBREL [Suspect]
  3. ARICEPT [Concomitant]
     Dosage: UNK

REACTIONS (5)
  - Cataract [Not Recovered/Not Resolved]
  - Pain [Not Recovered/Not Resolved]
  - Malaise [Unknown]
  - Post procedural discomfort [Not Recovered/Not Resolved]
  - Psoriasis [Not Recovered/Not Resolved]
